FAERS Safety Report 18044508 (Version 2)
Quarter: 2020Q3

REPORT INFORMATION
  Report Type: Spontaneous
  Country: US (occurrence: US)
  Receive Date: 20200720
  Receipt Date: 20200812
  Transmission Date: 20201103
  Serious: No
  Sender: FDA-Public Use
  Company Number: US-JNJFOC-20200720848

PATIENT
  Age: 69 Year
  Sex: Female
  Weight: 64.92 kg

DRUGS (1)
  1. WOMENS ROGAINE UNSCENTED [Suspect]
     Active Substance: MINOXIDIL
     Indication: ALOPECIA
     Dosage: DOSE:HALF A CAPFUL?PRODUCT LAST ADMINISTERED ON 12/JUL/2020
     Route: 061
     Dates: start: 202006

REACTIONS (2)
  - Application site acne [Recovered/Resolved]
  - Application site pruritus [Recovered/Resolved]

NARRATIVE: CASE EVENT DATE: 202007
